FAERS Safety Report 12950591 (Version 2)
Quarter: 2016Q4

REPORT INFORMATION
  Report Type: Spontaneous
  Country: DE (occurrence: DE)
  Receive Date: 20161117
  Receipt Date: 20161209
  Transmission Date: 20170207
  Serious: Yes (Hospitalization)
  Sender: FDA-Public Use
  Company Number: DE-SA-2016SA203931

PATIENT
  Age: 36 Year
  Sex: Female
  Weight: 149 kg

DRUGS (8)
  1. RAMILICH [Concomitant]
     Active Substance: RAMIPRIL
     Route: 048
     Dates: start: 201411, end: 201609
  2. AMLODIPIN [Concomitant]
     Active Substance: AMLODIPINE BESYLATE
     Route: 048
     Dates: start: 201609
  3. EUTHYROX [Concomitant]
     Active Substance: LEVOTHYROXINE SODIUM
     Route: 048
     Dates: start: 201402
  4. VELMETIA [Suspect]
     Active Substance: METFORMIN\SITAGLIPTIN
     Indication: TYPE 2 DIABETES MELLITUS
     Dosage: 50/850 MG / BID
     Route: 048
     Dates: start: 20140713, end: 20160908
  5. TOUJEO [Suspect]
     Active Substance: INSULIN GLARGINE
     Indication: TYPE 2 DIABETES MELLITUS
     Route: 058
     Dates: start: 201608, end: 20160908
  6. SOLOSTAR [Concomitant]
     Active Substance: DEVICE
     Indication: DIABETES MELLITUS
     Dates: start: 201608
  7. TOUJEO [Suspect]
     Active Substance: INSULIN GLARGINE
     Indication: TYPE 2 DIABETES MELLITUS
     Route: 058
     Dates: start: 20160808, end: 20160811
  8. TOUJEO [Suspect]
     Active Substance: INSULIN GLARGINE
     Indication: TYPE 2 DIABETES MELLITUS
     Dosage: ND DATE:AUG 16
     Route: 058
     Dates: start: 20160812

REACTIONS (5)
  - Tubulointerstitial nephritis [Recovered/Resolved]
  - Sepsis [Recovered/Resolved]
  - Normochromic normocytic anaemia [Recovered/Resolved]
  - Renal failure [Recovered/Resolved]
  - Gastroenteritis [Recovered/Resolved]

NARRATIVE: CASE EVENT DATE: 201609
